FAERS Safety Report 26218459 (Version 1)
Quarter: 2025Q4

REPORT INFORMATION
  Report Type: Report from Study
  Country: US (occurrence: US)
  Receive Date: 20251231
  Receipt Date: 20251231
  Transmission Date: 20260118
  Serious: No
  Sender: USAntibiotics
  Company Number: US-USAN-USUSAN2025OTH000008

PATIENT
  Age: 58 Year
  Sex: Female
  Weight: 140 kg

DRUGS (7)
  1. AUGMENTIN [Suspect]
     Active Substance: AMOXICILLIN\CLAVULANATE POTASSIUM
  2. VAGIFEM [Concomitant]
     Active Substance: ESTRADIOL
  3. FLONASE [Concomitant]
     Active Substance: FLUTICASONE PROPIONATE
  4. BREO ELLIPTA [Concomitant]
     Active Substance: FLUTICASONE FUROATE\VILANTEROL TRIFENATATE
  5. COMBIVENT RESPIMAT [Concomitant]
     Active Substance: ALBUTEROL SULFATE\IPRATROPIUM BROMIDE
  6. NICODERM CQ [Concomitant]
     Active Substance: NICOTINE
  7. PAXIL [Concomitant]
     Active Substance: PAROXETINE HYDROCHLORIDE

REACTIONS (1)
  - Gastrointestinal disorder [Unknown]

NARRATIVE: CASE EVENT DATE: 20250328
